FAERS Safety Report 14098952 (Version 1)
Quarter: 2017Q4

REPORT INFORMATION
  Report Type: Spontaneous
  Country: US (occurrence: US)
  Receive Date: 20171017
  Receipt Date: 20171017
  Transmission Date: 20180321
  Serious: No
  Sender: FDA-Public Use
  Company Number: US-SAREPTA THERAPEUTICS, INC-SRP-000051-2017

PATIENT
  Age: 7 Year
  Sex: Male
  Weight: 18.41 kg

DRUGS (2)
  1. EXONDYS 51 [Suspect]
     Active Substance: ETEPLIRSEN
     Indication: DUCHENNE MUSCULAR DYSTROPHY
     Dosage: 550 MG, WEEKLY
     Route: 042
     Dates: start: 20170727, end: 20170727
  2. EXONDYS 51 [Suspect]
     Active Substance: ETEPLIRSEN
     Dosage: 550 MG, WEEKLY
     Route: 042
     Dates: start: 20170728

REACTIONS (4)
  - Infusion related reaction [Recovered/Resolved]
  - Flushing [Recovered/Resolved]
  - Rash [Recovering/Resolving]
  - Cyanosis [Recovered/Resolved]

NARRATIVE: CASE EVENT DATE: 20170727
